FAERS Safety Report 15378133 (Version 2)
Quarter: 2019Q3

REPORT INFORMATION
  Report Type: Spontaneous
  Country: US (occurrence: US)
  Receive Date: 20180913
  Receipt Date: 20190909
  Transmission Date: 20191004
  Serious: No
  Sender: FDA-Public Use
  Company Number: US-ALLERGAN-1830776US

PATIENT
  Sex: Female

DRUGS (3)
  1. VANIQA [Suspect]
     Active Substance: EFLORNITHINE HYDROCHLORIDE
     Indication: HAIR GROWTH ABNORMAL
     Dosage: ACTUAL: ONE DAB, BID
     Route: 061
  2. VANIQA [Suspect]
     Active Substance: EFLORNITHINE HYDROCHLORIDE
     Dosage: UNKNOWN, MORNING AND NIGHT
     Route: 061
  3. VITAMINS [Concomitant]
     Active Substance: VITAMINS
     Dosage: UNK
     Route: 065

REACTIONS (1)
  - Drug ineffective [Unknown]
